FAERS Safety Report 24120968 (Version 1)
Quarter: 2024Q3

REPORT INFORMATION
  Report Type: Spontaneous
  Country: US (occurrence: None)
  Receive Date: 20240722
  Receipt Date: 20240722
  Transmission Date: 20241017
  Serious: Yes (Hospitalization)
  Sender: Public
  Company Number: None

PATIENT
  Age: 45 Year
  Sex: Female

DRUGS (3)
  1. DEFERASIROX [Suspect]
     Active Substance: DEFERASIROX
     Indication: Haemochromatosis
     Dosage: 1080MG ONCE DAILY BY MOUTH
     Route: 048
     Dates: start: 202404
  2. JADENU [Concomitant]
     Active Substance: DEFERASIROX
  3. OXBRYTA [Concomitant]
     Active Substance: VOXELOTOR

REACTIONS (1)
  - Sickle cell anaemia with crisis [None]

NARRATIVE: CASE EVENT DATE: 20240704
